FAERS Safety Report 7615707-2 (Version None)
Quarter: 2011Q3

REPORT INFORMATION
  Report Type: 
  Country: None (occurrence: None)
  Receive Date: 20110711
  Receipt Date: 20110628
  Transmission Date: 20111222
  Serious: Yes (Hospitalization)
  Sender: FDA-Public Use
  Company Number: 2011MA008362

PATIENT
  Age: 42 Year
  Sex: Female

DRUGS (3)
  1. CITALOPRAM HYDROBROMIDE [Suspect]
     Dosage: PO
     Route: 048
  2. CLOZARIL [Suspect]
     Indication: SCHIZOPHRENIA
     Dosage: PO
     Route: 048
     Dates: start: 20000419
  3. ACETAMINOPHEN [Suspect]

REACTIONS (1)
  - MULTIPLE DRUG OVERDOSE [None]
